FAERS Safety Report 13819367 (Version 2)
Quarter: 2017Q3

REPORT INFORMATION
  Report Type: Report from Study
  Country: US (occurrence: US)
  Receive Date: 20170801
  Receipt Date: 20170803
  Transmission Date: 20171127
  Serious: Yes (Other)
  Sender: FDA-Public Use
  Company Number: US-ROCHE-1968516

PATIENT
  Sex: Male

DRUGS (2)
  1. PRADAXA [Interacting]
     Active Substance: DABIGATRAN ETEXILATE MESYLATE
     Indication: PRODUCT USED FOR UNKNOWN INDICATION
     Route: 065
  2. VALCYTE [Suspect]
     Active Substance: VALGANCICLOVIR HYDROCHLORIDE
     Indication: LIVER TRANSPLANT
     Route: 048

REACTIONS (6)
  - Pain in extremity [Unknown]
  - Drug interaction [Unknown]
  - Facial pain [Unknown]
  - Burning sensation [Unknown]
  - Chest pain [Unknown]
  - Off label use [Unknown]
